FAERS Safety Report 17292639 (Version 1)
Quarter: 2020Q1

REPORT INFORMATION
  Report Type: Spontaneous
  Country: US (occurrence: US)
  Receive Date: 20200101
  Receipt Date: 20200101
  Transmission Date: 20200409
  Serious: Yes (Hospitalization)
  Sender: FDA-Public Use
  Company Number: None

PATIENT
  Age: 68 Year
  Sex: Male
  Weight: 75 kg

DRUGS (1)
  1. CISPLATIN. [Suspect]
     Active Substance: CISPLATIN
     Dates: end: 20191217

REACTIONS (6)
  - Tachycardia [None]
  - Leukopenia [None]
  - Pyrexia [None]
  - Tachypnoea [None]
  - Neutropenia [None]
  - Cough [None]

NARRATIVE: CASE EVENT DATE: 20191222
